FAERS Safety Report 8848568 (Version 1)
Quarter: 2012Q4

REPORT INFORMATION
  Report Type: 
  Country: US (occurrence: US)
  Receive Date: 20121018
  Receipt Date: 20121018
  Transmission Date: 20130627
  Serious: Yes (Hospitalization)
  Sender: FDA-Public Use
  Company Number: US-GLAXOSMITHKLINE-B0726478A

PATIENT
  Age: 68 Year
  Sex: Female

DRUGS (1)
  1. AVANDIA [Suspect]
     Indication: DIABETES MELLITUS
     Route: 048
     Dates: start: 19991011, end: 20050607

REACTIONS (5)
  - Cardiac failure congestive [Recovering/Resolving]
  - Mitral valve incompetence [Unknown]
  - Coronary artery bypass [Unknown]
  - Coronary artery disease [Unknown]
  - Supraventricular tachycardia [Unknown]
